FAERS Safety Report 14491498 (Version 2)
Quarter: 2018Q1

REPORT INFORMATION
  Report Type: Spontaneous
  Country: US (occurrence: US)
  Receive Date: 20180206
  Receipt Date: 20180215
  Transmission Date: 20180509
  Serious: Yes (Other)
  Sender: FDA-Public Use
  Company Number: US-HORIZON-PEN-0072-2018

PATIENT
  Age: 83 Year
  Sex: Female

DRUGS (1)
  1. PENNSAID [Suspect]
     Active Substance: DICLOFENAC SODIUM
     Indication: OSTEOARTHRITIS
     Route: 061

REACTIONS (10)
  - Influenza [Unknown]
  - Adverse drug reaction [Unknown]
  - Hypertension [Unknown]
  - Off label use [Unknown]
  - Joint effusion [Unknown]
  - Rectal haemorrhage [Unknown]
  - Accidental exposure to product [Unknown]
  - Joint range of motion decreased [Unknown]
  - Pulmonary congestion [Unknown]
  - Application site nodule [Unknown]

NARRATIVE: CASE EVENT DATE: 20180116
